FAERS Safety Report 6445383 (Version 2)
Quarter: 2012Q4

REPORT INFORMATION
  Report Type: Report from Study
  Country: US (occurrence: US)
  Receive Date: 20071019
  Receipt Date: 20121113
  Transmission Date: 20130627
  Serious: Yes (Congenital Anomaly)
  Sender: FDA-Public Use
  Company Number: US-AMGEN-US246916

PATIENT
  Age: 3 Week

DRUGS (6)
  1. ETANERCEPT [Suspect]
     Dosage: 50 mg, qwk
     Route: 064
     Dates: start: 20061108, end: 20070302
  2. PREDNISONE [Concomitant]
     Dosage: 20 mg, qd
     Route: 064
     Dates: start: 20070228, end: 20070314
  3. AZITHROMYCIN [Concomitant]
     Dosage: 250 mg, qd
     Route: 064
     Dates: start: 20070228, end: 20070314
  4. ALBUTEROL [Concomitant]
     Dosage: UNK
     Route: 064
     Dates: start: 20070228, end: 20070328
  5. PRENATAL VITAMINS [Concomitant]
     Dosage: UNK UNK, qd
     Route: 064
     Dates: start: 20070612, end: 20070701
  6. RHOGAM [Concomitant]
     Dosage: UNK UNK, one time dose
     Route: 064
     Dates: start: 20070530, end: 20070530

REACTIONS (3)
  - Congenital cystic lung [Unknown]
  - Developmental delay [Unknown]
  - Eyelid ptosis [Unknown]
